FAERS Safety Report 5931902-2 (Version None)
Quarter: 2008Q4

REPORT INFORMATION
  Report Type: 
  Country: None (occurrence: None)
  Receive Date: 20081027
  Receipt Date: 20081016
  Transmission Date: 20090506
  Serious: Yes (Death, Hospitalization)
  Sender: FDA-Public Use
  Company Number: FR-BAXTER-2008BH011160

PATIENT
  Age: 80 Year
  Sex: Female

DRUGS (9)
  1. ENDOXAN BAXTER [Suspect]
     Indication: BREAST CANCER
     Dosage: DOSE UNIT:UNKNOWN
     Route: 065
     Dates: start: 20080513, end: 20080626
  2. ENDOXAN BAXTER [Suspect]
     Route: 042
     Dates: start: 20080805, end: 20080805
  3. FLUOROURACIL [Suspect]
     Indication: BREAST CANCER
     Dosage: DOSE UNIT:UNKNOWN
     Route: 065
     Dates: start: 20080513, end: 20080626
  4. FLUOROURACIL [Suspect]
     Route: 042
     Dates: start: 20080805, end: 20080805
  5. SOLU-MEDROL [Suspect]
     Indication: PREMEDICATION
     Route: 042
     Dates: start: 20080805, end: 20080805
  6. ZOPHREN [Suspect]
     Indication: PREMEDICATION
     Route: 042
     Dates: start: 20080805, end: 20080805
  7. TAXOTERE [Suspect]
     Indication: BREAST CANCER
     Route: 065
     Dates: start: 20080715, end: 20080715
  8. EPIRUBICIN [Concomitant]
     Indication: BREAST CANCER
     Dosage: DOSE UNIT:UNKNOWN
     Route: 065
     Dates: start: 20080513, end: 20080626
  9. MEDROL [Concomitant]
     Dates: start: 20080715, end: 20080715

REACTIONS (3)
  - INTERSTITIAL LUNG DISEASE [None]
  - PULMONARY FIBROSIS [None]
  - RESPIRATORY DISTRESS [None]
